FAERS Safety Report 16092419 (Version 8)
Quarter: 2019Q4

REPORT INFORMATION
  Report Type: Report from Study
  Country: US (occurrence: US)
  Receive Date: 20190319
  Receipt Date: 20191120
  Transmission Date: 20200122
  Serious: Yes (Life-Threatening, Other)
  Sender: FDA-Public Use
  Company Number: PHEH2019US011226

PATIENT
  Sex: Female
  Weight: 136.05 kg

DRUGS (5)
  1. GILENYA [Suspect]
     Active Substance: FINGOLIMOD HYDROCHLORIDE
     Dosage: 0.5 MG, QD
     Route: 048
     Dates: start: 20160404
  2. ATENOLOL. [Suspect]
     Active Substance: ATENOLOL
     Indication: PRODUCT USED FOR UNKNOWN INDICATION
     Route: 065
  3. GILENYA [Suspect]
     Active Substance: FINGOLIMOD HYDROCHLORIDE
     Dosage: 0.5 MG, QD
     Route: 048
  4. GILENYA [Suspect]
     Active Substance: FINGOLIMOD HYDROCHLORIDE
     Dosage: 0.5 MG, QD
     Route: 048
     Dates: start: 20160601
  5. GILENYA [Suspect]
     Active Substance: FINGOLIMOD HYDROCHLORIDE
     Indication: MULTIPLE SCLEROSIS
     Dosage: 0.5 MG, QD
     Route: 048
     Dates: start: 20151120

REACTIONS (17)
  - Dental caries [Unknown]
  - Headache [Unknown]
  - Hepatic enzyme increased [Unknown]
  - Weight increased [Unknown]
  - Anxiety [Not Recovered/Not Resolved]
  - Temperature intolerance [Unknown]
  - Clostridium difficile infection [Unknown]
  - Tooth disorder [Unknown]
  - Depression [Not Recovered/Not Resolved]
  - Feeling abnormal [Unknown]
  - Wheezing [Unknown]
  - Menstruation irregular [Unknown]
  - Arthralgia [Unknown]
  - Myalgia [Unknown]
  - Sensory disturbance [Recovered/Resolved]
  - Dizziness [Unknown]
  - Anger [Unknown]
